FAERS Safety Report 23263060 (Version 1)
Quarter: 2023Q4

REPORT INFORMATION
  Report Type: Spontaneous
  Country: US (occurrence: US)
  Receive Date: 20231205
  Receipt Date: 20231205
  Transmission Date: 20240110
  Serious: Yes (Other)
  Sender: FDA-Public Use
  Company Number: US-UPSHER-SMITH LABORATORIES, LLC-2023USL00968

PATIENT
  Age: 27 Year

DRUGS (5)
  1. TESTOSTERONE [Suspect]
     Active Substance: TESTOSTERONE
     Indication: Transgender hormonal therapy
     Dosage: 60 MG, 1X/WEEK
  2. TESTOSTERONE [Suspect]
     Active Substance: TESTOSTERONE
     Indication: Menstrual cycle management
     Dosage: 80 MG, 1X/WEEK
  3. TESTOSTERONE [Suspect]
     Active Substance: TESTOSTERONE
     Dosage: 60 MG, 1X/WEEK
  4. CABERGOLINE [Concomitant]
     Active Substance: CABERGOLINE
     Indication: Pituitary tumour benign
     Dosage: 0.5 MG, 2X/WEEK
  5. CABERGOLINE [Concomitant]
     Active Substance: CABERGOLINE
     Dosage: 1 MG, 2X/WEEK

REACTIONS (1)
  - Prolactin-producing pituitary tumour [Not Recovered/Not Resolved]
